FAERS Safety Report 21313663 (Version 1)
Quarter: 2022Q3

REPORT INFORMATION
  Report Type: Spontaneous
  Country: RU (occurrence: None)
  Receive Date: 20220909
  Receipt Date: 20220909
  Transmission Date: 20221027
  Serious: Yes (Other)
  Sender: FDA-Public Use
  Company Number: 2022A308744

PATIENT
  Age: 47 Year
  Sex: Female
  Weight: 65 kg

DRUGS (1)
  1. EVUSHELD [Suspect]
     Active Substance: CILGAVIMAB\TIXAGEVIMAB
     Indication: Immunosuppressant drug therapy
     Dosage: ONCE/SINGLE ADMINISTRATION
     Route: 030
     Dates: start: 20220830, end: 20220830

REACTIONS (1)
  - Angioedema [Recovered/Resolved]
